FAERS Safety Report 15976885 (Version 2)
Quarter: 2019Q1

REPORT INFORMATION
  Report Type: Report from Study
  Country: GT (occurrence: GT)
  Receive Date: 20190218
  Receipt Date: 20190306
  Transmission Date: 20190418
  Serious: No
  Sender: FDA-Public Use
  Company Number: PHHY2019GT036317

PATIENT
  Sex: Male

DRUGS (1)
  1. EXFORGE [Suspect]
     Active Substance: AMLODIPINE BESYLATE\VALSARTAN
     Indication: CEREBROVASCULAR ACCIDENT
     Dosage: 0.5 DF, BID (AMLODIPINE 10 MG AND VALSARTAN 320 MG), APPROXIMATELY A YEAR AGO
     Route: 065

REACTIONS (3)
  - Blood pressure increased [Unknown]
  - Wrong technique in product usage process [Unknown]
  - Product use in unapproved indication [Unknown]
